FAERS Safety Report 9932939 (Version 2)
Quarter: 2014Q1

REPORT INFORMATION
  Report Type: Spontaneous
  Country: US (occurrence: US)
  Receive Date: 20140228
  Receipt Date: 20140228
  Transmission Date: 20141002
  Serious: No
  Sender: FDA-Public Use
  Company Number: US-ABBVIE-13P-163-1075749-00

PATIENT
  Sex: Male
  Weight: 78.54 kg

DRUGS (6)
  1. ANDROGEL [Suspect]
     Indication: BLOOD TESTOSTERONE DECREASED
     Dosage: 3 PUMPS PER DAY
     Dates: start: 2003
  2. LEVOTHYROXINE [Concomitant]
     Indication: THYROID DISORDER
  3. ALLOPURINOL [Concomitant]
     Indication: GOUT
  4. COLCRYS [Concomitant]
     Indication: GOUT
  5. TRIAMTERENE/HCTZ [Concomitant]
     Indication: FLUID RETENTION
  6. PRAVASTATIN [Concomitant]
     Indication: PRODUCT USED FOR UNKNOWN INDICATION

REACTIONS (1)
  - Androgenetic alopecia [Not Recovered/Not Resolved]
